FAERS Safety Report 12979317 (Version 2)
Quarter: 2016Q4

REPORT INFORMATION
  Report Type: Spontaneous
  Country: NL (occurrence: NL)
  Receive Date: 20161128
  Receipt Date: 20161201
  Transmission Date: 20170207
  Serious: Yes (Hospitalization, Other)
  Sender: FDA-Public Use
  Company Number: NL-PFIZER INC-2016547850

PATIENT
  Age: 45 Year
  Sex: Male
  Weight: 67 kg

DRUGS (2)
  1. PANTOPRAZOLE [Suspect]
     Active Substance: PANTOPRAZOLE SODIUM
     Indication: DYSPEPSIA
     Dosage: 40 MG, BID
     Route: 048
     Dates: start: 20061108, end: 20160131
  2. MIRTAZAPINE. [Concomitant]
     Active Substance: MIRTAZAPINE
     Dosage: 7.5 MG, QD
     Route: 048
     Dates: start: 20070601

REACTIONS (6)
  - Muscle atrophy [Recovered/Resolved with Sequelae]
  - Hypophosphataemia [Recovered/Resolved]
  - Insomnia [Recovered/Resolved with Sequelae]
  - Hypomagnesaemia [Recovered/Resolved with Sequelae]
  - Confusional state [Recovered/Resolved with Sequelae]
  - Haemoglobin decreased [Not Recovered/Not Resolved]

NARRATIVE: CASE EVENT DATE: 20070601
